FAERS Safety Report 8139329-2 (Version None)
Quarter: 2012Q1

REPORT INFORMATION
  Report Type: 
  Country: None (occurrence: None)
  Receive Date: 20120215
  Receipt Date: 20120209
  Transmission Date: 20120608
  Serious: Yes (Other)
  Sender: FDA-Public Use
  Company Number: BE-BAYER-2011-025352

PATIENT
  Age: 30 Year
  Sex: Female

DRUGS (1)
  1. MOXIFLOXACIN [Suspect]
     Indication: CYSTITIS
     Dosage: 400 MG, QD
     Route: 048
     Dates: start: 20110307, end: 20110309

REACTIONS (1)
  - PREMATURE BABY [None]
